FAERS Safety Report 23659029 (Version 1)
Quarter: 2024Q1

REPORT INFORMATION
  Report Type: Spontaneous
  Country: US (occurrence: US)
  Receive Date: 20240321
  Receipt Date: 20240321
  Transmission Date: 20240409
  Serious: No
  Sender: FDA-Public Use
  Company Number: US-BRAEBURN-US-BRA-23-000994

PATIENT
  Sex: Female

DRUGS (2)
  1. BRIXADI [Suspect]
     Active Substance: BUPRENORPHINE
     Indication: Drug use disorder
     Dosage: 128 MILLIGRAM, MONTHLY
     Route: 065
  2. SUBUTEX [Concomitant]
     Active Substance: BUPRENORPHINE HYDROCHLORIDE
     Indication: Product used for unknown indication
     Dosage: 24 MILLIGRAM, QD
     Route: 065

REACTIONS (2)
  - Menstruation irregular [Not Recovered/Not Resolved]
  - Withdrawal syndrome [Not Recovered/Not Resolved]
